FAERS Safety Report 9062234 (Version 1)
Quarter: 2013Q1

REPORT INFORMATION
  Report Type: Spontaneous
  Country: US (occurrence: None)
  Receive Date: 20130122
  Receipt Date: 20130122
  Transmission Date: 20140127
  Serious: Yes (Other)
  Sender: FDA-Public Use
  Company Number: 1568302

PATIENT
  Age: 71 Year
  Sex: 0

DRUGS (3)
  1. PENTOSTATINE [Suspect]
     Indication: CHRONIC LYMPHOCYTIC LEUKAEMIA
     Dosage: NOT REPORTED , NOT REPORTED, UNKNOWN,
  2. CYTOXAN [Suspect]
     Indication: CHRONIC LYMPHOCYTIC LEUKAEMIA
     Dosage: NOT REPORTED , NOT REPORTED, UNKNOWN,
  3. RITUXAN [Suspect]
     Indication: CHRONIC LYMPHOCYTIC LEUKAEMIA
     Dosage: NOT REPORTED , NOT REPORTED, UNKNOWN,

REACTIONS (3)
  - Blood count abnormal [None]
  - Pyrexia [None]
  - Asthenia [None]
